FAERS Safety Report 5805588-1 (Version None)
Quarter: 2008Q3

REPORT INFORMATION
  Report Type: 
  Country: None (occurrence: None)
  Receive Date: 20080708
  Receipt Date: 20080708
  Transmission Date: 20090109
  Serious: Yes (Death)
  Sender: FDA-Public Use
  Company Number: None

PATIENT
  Age: 40 Year
  Sex: Female
  Weight: 115.6672 kg

DRUGS (1)
  1. FENTANYL [Suspect]

REACTIONS (1)
  - DRUG TOXICITY [None]
